FAERS Safety Report 5443240-5 (Version None)
Quarter: 2007Q3

REPORT INFORMATION
  Report Type: 
  Country: None (occurrence: None)
  Receive Date: 20070831
  Receipt Date: 20070831
  Transmission Date: 20080115
  Serious: Yes (Death)
  Sender: FDA-Public Use
  Company Number: None

PATIENT
  Sex: Female
  Weight: 7.7111 kg

DRUGS (1)
  1. CARBINOXAMINE MALEATE [Suspect]
     Indication: UPPER RESPIRATORY TRACT INFECTION
     Dosage: 0.5 ML EVERY 6 HOURS PO
     Route: 048
     Dates: start: 20070821, end: 20070822

REACTIONS (2)
  - LETHARGY [None]
  - LOSS OF CONSCIOUSNESS [None]
